FAERS Safety Report 16583638 (Version 1)
Quarter: 2019Q3

REPORT INFORMATION
  Report Type: Spontaneous
  Country: IS (occurrence: IS)
  Receive Date: 20190717
  Receipt Date: 20190717
  Transmission Date: 20191004
  Serious: Yes (Life-Threatening)
  Sender: FDA-Public Use
  Company Number: IS-TEVA-2019-IS-1077318

PATIENT
  Age: 46 Year
  Sex: Male
  Weight: 190 kg

DRUGS (3)
  1. GLUCOMED 625 MG TOFLUR [Concomitant]
     Dosage: 1
     Dates: start: 20190101, end: 20190302
  2. PRESMIN 50 MG FILMUHUDADAR TOFLUR. [Concomitant]
     Dosage: 1 TO 2
  3. WARFARIN TEVA [Suspect]
     Active Substance: WARFARIN SODIUM
     Indication: PULMONARY EMBOLISM
     Dosage: 3 TABLETS PER DAY
     Dates: start: 20160101

REACTIONS (6)
  - Dyspnoea [Not Recovered/Not Resolved]
  - Rash macular [Not Recovered/Not Resolved]
  - Pharyngeal swelling [Not Recovered/Not Resolved]
  - Secretion discharge [Not Recovered/Not Resolved]
  - Cough [Not Recovered/Not Resolved]
  - Swollen tongue [Not Recovered/Not Resolved]

NARRATIVE: CASE EVENT DATE: 20190101
